FAERS Safety Report 10245293 (Version 2)
Quarter: 2014Q2

REPORT INFORMATION
  Report Type: Spontaneous
  Country: US (occurrence: US)
  Receive Date: 20140618
  Receipt Date: 20140626
  Transmission Date: 20141212
  Serious: Yes (Death, Other)
  Sender: FDA-Public Use
  Company Number: US-ROCHE-1419133

PATIENT
  Age: 64 Year
  Sex: Male

DRUGS (6)
  1. ACTILYSE [Suspect]
     Indication: THROMBOSIS IN DEVICE
     Dosage: 1 IN 1 ONCE
     Route: 013
  2. ASPIRIN [Concomitant]
     Indication: CORONARY ARTERY STENOSIS
     Route: 065
  3. NITROGLYCERIN [Concomitant]
     Indication: CORONARY ARTERY STENOSIS
  4. EPTIFIBATIDE [Concomitant]
     Indication: CORONARY ARTERY STENOSIS
  5. ARGATROBAN [Concomitant]
  6. PRASUGREL [Concomitant]

REACTIONS (5)
  - Cardiac arrest [Fatal]
  - Myocardial infarction [Unknown]
  - Upper gastrointestinal haemorrhage [Unknown]
  - General physical health deterioration [Unknown]
  - Blood creatinine increased [Unknown]
